FAERS Safety Report 13084843 (Version 1)
Quarter: 2017Q1

REPORT INFORMATION
  Report Type: Spontaneous
  Country: US (occurrence: US)
  Receive Date: 20170104
  Receipt Date: 20170104
  Transmission Date: 20170428
  Serious: No
  Sender: FDA-Public Use
  Company Number: US-ARBOR PHARMACEUTICALS, LLC-US-2015ARB002575

PATIENT

DRUGS (1)
  1. SKLICE [Suspect]
     Active Substance: IVERMECTIN
     Indication: LICE INFESTATION
     Dosage: DOSE: 0.5% 4 OZ
     Route: 065
     Dates: start: 20150531, end: 20150531

REACTIONS (1)
  - Drug ineffective [Unknown]
